FAERS Safety Report 17075290 (Version 3)
Quarter: 2019Q4

REPORT INFORMATION
  Report Type: Spontaneous
  Country: US (occurrence: US)
  Receive Date: 20191126
  Receipt Date: 20191224
  Transmission Date: 20200122
  Serious: Yes (Disabling, Other)
  Sender: FDA-Public Use
  Company Number: US-PFIZER INC-2019506984

PATIENT
  Age: 65 Year
  Sex: Female
  Weight: 62.14 kg

DRUGS (14)
  1. PREMARIN [Suspect]
     Active Substance: ESTROGENS, CONJUGATED
     Indication: BONE DISORDER
     Dosage: 0.9 (UNKNOWN UNIT AND FREQUENCY)
     Route: 048
  2. PREMARIN [Suspect]
     Active Substance: ESTROGENS, CONJUGATED
     Indication: HORMONE REPLACEMENT THERAPY
     Dosage: UNK, 1X/DAY
     Route: 048
  3. PLAQUENIL [Concomitant]
     Active Substance: HYDROXYCHLOROQUINE SULFATE
     Dosage: UNK
  4. CELEBREX [Concomitant]
     Active Substance: CELECOXIB
     Dosage: UNK
  5. LASIX [Concomitant]
     Active Substance: FUROSEMIDE
  6. PREMARIN [Suspect]
     Active Substance: ESTROGENS, CONJUGATED
     Dosage: 0.625 MG, 1X/DAY
     Route: 048
  7. OSTEO BI-FLEX [Concomitant]
     Active Substance: CHONDROITIN SULFATE A\GLUCOSAMINE
     Dosage: UNK
  8. XALATAN [Concomitant]
     Active Substance: LATANOPROST
     Dosage: UNK
  9. MYCOPHENOLATE [Concomitant]
     Active Substance: MYCOPHENOLIC ACID
     Dosage: UNK
  10. PREMARIN [Suspect]
     Active Substance: ESTROGENS, CONJUGATED
     Indication: BACK DISORDER
     Dosage: 0.6 (UNKNOWN UNIT AND FREQUENCY)
     Route: 048
  11. LATANOPROST. [Concomitant]
     Active Substance: LATANOPROST
  12. PREDNISONE. [Concomitant]
     Active Substance: PREDNISONE
     Dosage: UNK
  13. CARDIZEM [Concomitant]
     Active Substance: DILTIAZEM HYDROCHLORIDE
     Dosage: UNK
  14. PRILOSEC [Concomitant]
     Active Substance: OMEPRAZOLE MAGNESIUM
     Dosage: UNK

REACTIONS (7)
  - Asthenia [Unknown]
  - Arthralgia [Unknown]
  - Connective tissue disorder [Not Recovered/Not Resolved]
  - Muscle atrophy [Not Recovered/Not Resolved]
  - Laryngitis [Unknown]
  - Bone pain [Unknown]
  - Polymyositis [Not Recovered/Not Resolved]

NARRATIVE: CASE EVENT DATE: 201804
